FAERS Safety Report 4768212-5 (Version None)
Quarter: 2005Q3

REPORT INFORMATION
  Report Type: 
  Country: None (occurrence: None)
  Receive Date: 20050908
  Receipt Date: 20050601
  Transmission Date: 20060218
  Serious: No
  Sender: FDA-Public Use
  Company Number: A03200500385

PATIENT
  Age: 79 Year
  Sex: Female
  Weight: 67.7674 kg

DRUGS (6)
  1. ELOXATIN [Suspect]
     Indication: COLORECTAL CANCER
     Dosage: MG Q3W - INTRAVENOUS NOS
     Route: 042
     Dates: start: 20050208, end: 20050208
  2. CAPECITABINE [Concomitant]
  3. DEXAMETHASONE [Concomitant]
  4. PALONOSETRON HYDROCHLORIDE [Concomitant]
  5. CALCIUM GLUCONATE [Concomitant]
  6. MAGNESIUM [Concomitant]

REACTIONS (1)
  - TREMOR [None]
